FAERS Safety Report 22113525 (Version 1)
Quarter: 2023Q1

REPORT INFORMATION
  Report Type: Other
  Country: AU (occurrence: AU)
  Receive Date: 20230320
  Receipt Date: 20230320
  Transmission Date: 20230417
  Serious: No
  Sender: FDA-Public Use
  Company Number: AU-TOLMAR, INC.-23AU039109

PATIENT
  Sex: Male

DRUGS (1)
  1. ELIGARD [Suspect]
     Active Substance: LEUPROLIDE ACETATE
     Indication: Prostate cancer
     Dosage: 22.5 MILLIGRAM, Q 3 MONTH
     Dates: start: 20221212

REACTIONS (4)
  - Musculoskeletal stiffness [Unknown]
  - Hot flush [Unknown]
  - Fatigue [Unknown]
  - Back pain [Unknown]
